FAERS Safety Report 8158840-1 (Version None)
Quarter: 2012Q1

REPORT INFORMATION
  Report Type: 
  Country: None (occurrence: None)
  Receive Date: 20120217
  Receipt Date: 20120210
  Transmission Date: 20120608
  Serious: Yes (Hospitalization)
  Sender: FDA-Public Use
  Company Number: DSM-2012-00063

PATIENT
  Age: 71 Year
  Sex: Female

DRUGS (7)
  1. ZOCOR [Concomitant]
  2. DAFALGAN (PARACETAMOL) (500 MILLIGRAM, TABLET) (PARACETAMOL) [Concomitant]
  3. TEMESTA (LORAZEPAM) (LORAZEPAM) [Concomitant]
  4. DETENSIEL (BISOPROLOL) (BISOPROLOL) [Concomitant]
  5. STABLON (TIANEPTINE SODIUM) (12.5 MILLIGRAM) (TIANEPTINE SODIUM) [Concomitant]
  6. AXELER (OLMESARTAN MEDOXOMIL, AMLODIPINE BESILATE) (TABLET) (OLMESARTA [Suspect]
     Indication: HYPERTENSION
     Dosage: 20/5MG,ORAL
     Route: 048
     Dates: start: 20100127
  7. NEXIUM [Concomitant]

REACTIONS (18)
  - ARTHRALGIA [None]
  - PRURITUS [None]
  - HEADACHE [None]
  - CULTURE URINE POSITIVE [None]
  - RASH [None]
  - FATIGUE [None]
  - GAMMA-GLUTAMYLTRANSFERASE INCREASED [None]
  - HEPATOCELLULAR INJURY [None]
  - FOLLICULITIS [None]
  - PURPURA [None]
  - XEROPHTHALMIA [None]
  - BLOOD PRESSURE SYSTOLIC INCREASED [None]
  - CAPILLARY DISORDER [None]
  - DRY MOUTH [None]
  - DYSURIA [None]
  - THROMBOSIS [None]
  - PYREXIA [None]
  - SJOGREN'S SYNDROME [None]
